FAERS Safety Report 7040066-6 (Version None)
Quarter: 2010Q4

REPORT INFORMATION
  Report Type: 
  Country: None (occurrence: None)
  Receive Date: 20101012
  Receipt Date: 20100928
  Transmission Date: 20110411
  Serious: Yes (Other)
  Sender: FDA-Public Use
  Company Number: PHHY2010DE64739

PATIENT

DRUGS (1)
  1. RASILEZ [Suspect]
     Dosage: 150 MG, QD

REACTIONS (1)
  - ALVEOLITIS ALLERGIC [None]
